FAERS Safety Report 23574391 (Version 1)
Quarter: 2024Q1

REPORT INFORMATION
  Report Type: Spontaneous
  Country: US (occurrence: US)
  Receive Date: 20240228
  Receipt Date: 20240228
  Transmission Date: 20240409
  Serious: Yes (Other)
  Sender: FDA-Public Use
  Company Number: US-TEVA-VS-3161030

PATIENT
  Age: 41 Year
  Sex: Female

DRUGS (5)
  1. COPAXONE [Suspect]
     Active Substance: GLATIRAMER ACETATE
     Indication: Multiple sclerosis
     Route: 065
  2. VITAMIN D [Concomitant]
     Active Substance: VITAMIN D NOS
  3. GABAPENTIN [Concomitant]
     Active Substance: GABAPENTIN
  4. TIZANIDINE [Concomitant]
     Active Substance: TIZANIDINE
  5. CLONAZEPAM [Concomitant]
     Active Substance: CLONAZEPAM

REACTIONS (1)
  - Multiple sclerosis relapse [Unknown]
